FAERS Safety Report 4386834-0 (Version None)
Quarter: 2004Q2

REPORT INFORMATION
  Report Type: 
  Country: None (occurrence: None)
  Receive Date: 20040622
  Receipt Date: 20030320
  Transmission Date: 20050107
  Serious: Yes (Hospitalization)
  Sender: FDA-Public Use
  Company Number: F02200300041

PATIENT
  Age: 77 Year
  Sex: Male

DRUGS (7)
  1. XATRAL - (ALFUZOSIN - TABLET PR - 10 MG [Suspect]
     Indication: BENIGN PROSTATIC HYPERPLASIA
     Dosage: 10 MG OD
     Route: 048
     Dates: start: 20010502
  2. LASIX [Concomitant]
  3. AMLODIPINE BESYLATE [Concomitant]
  4. FENOFIBRATE [Concomitant]
  5. COZAAR [Concomitant]
  6. CORDARONE [Concomitant]
  7. KARDEGIC (ACETYLSALICYLATE) [Concomitant]

REACTIONS (16)
  - ARRHYTHMIA SUPRAVENTRICULAR [None]
  - ATRIAL FIBRILLATION [None]
  - BUNDLE BRANCH BLOCK LEFT [None]
  - CARDIAC DISORDER [None]
  - HYPOKINESIA [None]
  - LOSS OF CONSCIOUSNESS [None]
  - MALAISE [None]
  - MITRAL VALVE INCOMPETENCE [None]
  - OEDEMA PERIPHERAL [None]
  - PAIN IN EXTREMITY [None]
  - SUPRAVENTRICULAR EXTRASYSTOLES [None]
  - ULTRASOUND DOPPLER ABNORMAL [None]
  - ULTRASOUND DOPPLER NORMAL [None]
  - VASCULAR CALCIFICATION [None]
  - VENTRICULAR EXTRASYSTOLES [None]
  - VENTRICULAR TACHYCARDIA [None]
